FAERS Safety Report 13876455 (Version 12)
Quarter: 2017Q4

REPORT INFORMATION
  Report Type: Report from Study
  Country: BR (occurrence: BR)
  Receive Date: 20170817
  Receipt Date: 20171222
  Transmission Date: 20180320
  Serious: Yes (Life-Threatening, Hospitalization)
  Sender: FDA-Public Use
  Company Number: BR-ROCHE-1977048

PATIENT
  Age: 48 Year
  Sex: Male
  Weight: 55 kg

DRUGS (13)
  1. VONAU [Concomitant]
     Active Substance: ONDANSETRON HYDROCHLORIDE
     Route: 048
     Dates: start: 20170713, end: 20170721
  2. DRAMAMINE [Concomitant]
     Active Substance: DIMENHYDRINATE
     Indication: VOMITING
     Route: 048
     Dates: start: 20170808
  3. BROMOPRIDE [Concomitant]
     Active Substance: BROMOPRIDE
     Indication: VOMITING
     Route: 048
     Dates: start: 20170808
  4. DIPYRONE [Concomitant]
     Active Substance: DIPYRONE
     Indication: INFUSION RELATED REACTION
     Route: 048
     Dates: start: 20170711, end: 20170808
  5. DIMORF [Concomitant]
     Active Substance: MORPHINE SULFATE
     Route: 048
     Dates: start: 20170613, end: 20170807
  6. DIMORF [Concomitant]
     Active Substance: MORPHINE SULFATE
     Route: 048
     Dates: start: 20170808
  7. PROCTYL (BRAZIL) [Concomitant]
     Indication: PROCTALGIA
     Dosage: DOSE 3 UNIT NOT REPORTED
     Route: 061
     Dates: start: 20170815, end: 20170818
  8. ONDANSETRON [Concomitant]
     Active Substance: ONDANSETRON
     Indication: VOMITING
     Route: 048
     Dates: start: 20170722
  9. VITAMIN C [Concomitant]
     Active Substance: ASCORBIC ACID
     Dosage: DOSE: 1 OTHER?SACHET
     Route: 048
     Dates: start: 20170720
  10. ATEZOLIZUMAB. [Suspect]
     Active Substance: ATEZOLIZUMAB
     Indication: MALIGNANT URINARY TRACT NEOPLASM
     Dosage: MOST RECENT DOSE ON 08/AUG/2017
     Route: 042
     Dates: start: 20170720
  11. CIPROFLOXACIN. [Concomitant]
     Active Substance: CIPROFLOXACIN
     Indication: URINARY TRACT INFECTION
     Route: 048
     Dates: start: 20170811, end: 20170816
  12. DIPYRONE [Concomitant]
     Active Substance: DIPYRONE
     Dosage: 1 AMPULE
     Route: 042
     Dates: start: 20170808, end: 20170808
  13. DEXAMETHASONE. [Concomitant]
     Active Substance: DEXAMETHASONE
     Indication: HYPERCALCAEMIA
     Route: 048
     Dates: start: 20170830

REACTIONS (2)
  - Hypercalcaemia [Recovered/Resolved]
  - Infusion related reaction [Recovered/Resolved]

NARRATIVE: CASE EVENT DATE: 20170808
